FAERS Safety Report 5723243-3 (Version None)
Quarter: 2008Q2

REPORT INFORMATION
  Report Type: 
  Country: None (occurrence: None)
  Receive Date: 20080430
  Receipt Date: 20080214
  Transmission Date: 20081010
  Serious: Yes (Hospitalization)
  Sender: FDA-Public Use
  Company Number: US-ASTRAZENECA-2008UW03256

PATIENT
  Age: 10 Year
  Sex: Male

DRUGS (4)
  1. NEXIUM [Suspect]
     Route: 048
     Dates: start: 20080122, end: 20080122
  2. SINGULAIR [Concomitant]
  3. ALLEGRA [Concomitant]
  4. PEPCID [Concomitant]

REACTIONS (1)
  - ANAPHYLACTIC REACTION [None]
